FAERS Safety Report 7956292-5 (Version None)
Quarter: 2011Q4

REPORT INFORMATION
  Report Type: 
  Country: None (occurrence: None)
  Receive Date: 20111205
  Receipt Date: 20111122
  Transmission Date: 20120403
  Serious: Yes (Hospitalization)
  Sender: FDA-Public Use
  Company Number: US-ELI_LILLY_AND_COMPANY-US201111007851

PATIENT
  Sex: Female

DRUGS (7)
  1. SULFAMETHOXAZOLE AND TRIMETHOPRIM [Concomitant]
     Dosage: UNK
     Route: 065
     Dates: end: 20111122
  2. NEXIUM [Concomitant]
     Dosage: 40 MG, QD
  3. HYDROCHLOROTHIAZIDE [Concomitant]
     Dosage: 12.5 MG, QD
     Route: 065
  4. VITAMIN D [Concomitant]
     Dosage: 1000 UL, QD
  5. COMBIVENT [Concomitant]
     Dosage: UNK, PRN
  6. FORTEO [Suspect]
     Indication: OSTEOPOROSIS
     Dosage: 20 UG, QD
     Route: 065
     Dates: start: 20111008
  7. COREG [Concomitant]
     Dosage: 20 MG, QD

REACTIONS (1)
  - PNEUMONIA BACTERIAL [None]
